FAERS Safety Report 7802978-2 (Version None)
Quarter: 2011Q4

REPORT INFORMATION
  Report Type: 
  Country: None (occurrence: None)
  Receive Date: 20111007
  Receipt Date: 20111003
  Transmission Date: 20120403
  Serious: Yes (Other)
  Sender: FDA-Public Use
  Company Number: HR-ABBOTT-11P-216-0860319-00

PATIENT
  Sex: Male

DRUGS (3)
  1. HUMIRA [Suspect]
     Indication: PSORIATIC ARTHROPATHY
     Route: 058
     Dates: start: 20091101, end: 20110801
  2. LUPOCEL [Concomitant]
     Indication: PRODUCT USED FOR UNKNOWN INDICATION
     Dosage: 1-2 TABLETS PER DAY, PER OS
  3. HUMIRA [Suspect]
     Indication: PSORIASIS

REACTIONS (4)
  - HEPATIC ENZYME INCREASED [None]
  - PAIN [None]
  - HYPERTRANSAMINASAEMIA [None]
  - OSTEOARTHRITIS [None]
